FAERS Safety Report 6752371-9 (Version None)
Quarter: 2010Q2

REPORT INFORMATION
  Report Type: 
  Country: None (occurrence: None)
  Receive Date: 20100602
  Receipt Date: 20100517
  Transmission Date: 20101027
  Serious: No
  Sender: FDA-Public Use
  Company Number: US-B.I. PHARMACEUTICALS,INC./RIDGEFIELD-2010-BP-05684BP

PATIENT
  Sex: Female

DRUGS (2)
  1. SPIRIVA [Suspect]
     Indication: CHRONIC OBSTRUCTIVE PULMONARY DISEASE
     Dosage: 18 MCG
     Route: 055
     Dates: start: 20100401
  2. SPIRIVA [Suspect]
     Indication: BRONCHITIS CHRONIC

REACTIONS (5)
  - COUGH [None]
  - GLOSSODYNIA [None]
  - INCREASED UPPER AIRWAY SECRETION [None]
  - NASAL CONGESTION [None]
  - SWOLLEN TONGUE [None]
